FAERS Safety Report 6227781-9 (Version None)
Quarter: 2009Q2

REPORT INFORMATION
  Report Type: 
  Country: None (occurrence: None)
  Receive Date: 20090612
  Receipt Date: 20090529
  Transmission Date: 20091009
  Serious: Yes (Other)
  Sender: FDA-Public Use
  Company Number: PHHY2009FI15510

PATIENT
  Sex: Female

DRUGS (12)
  1. STALEVO 100 [Suspect]
     Indication: PARKINSON'S DISEASE
     Dosage: 100/25/200 MG, THREE TIMES 100 DAILY
     Dates: start: 20040614
  2. STALEVO 100 [Suspect]
     Dosage: 100 MG, TID
  3. STALEVO 100 [Suspect]
     Dosage: 150 MG, TID
     Dates: start: 20090227
  4. SIFROL [Concomitant]
     Dosage: 2 TABLETS X 3 (0.25)
     Dates: start: 20020401
  5. SIFROL [Concomitant]
     Dosage: 1 TABLET X 3 (0.7 MG)
     Dates: start: 20020812
  6. SIFROL [Concomitant]
     Dosage: 1 MG
  7. SIFROL [Concomitant]
     Dosage: 1 TABLET X 3 (0.18)
     Dates: start: 20031110, end: 20051009
  8. SIFROL [Concomitant]
     Dosage: UNK
     Dates: end: 20051001
  9. REQUIP [Concomitant]
     Dosage: 1 DF, TID
     Dates: start: 20051009
  10. KARDOPAL [Concomitant]
     Dosage: 1 DF, TID
     Dates: start: 20040305, end: 20040614
  11. TIZANIDINE HCL [Concomitant]
     Dosage: 1-2 TABLETS AS NEEDED
     Dates: start: 20051104
  12. SOMAC [Concomitant]
     Dosage: UNK
     Dates: start: 20051117

REACTIONS (6)
  - DEHYDRATION [None]
  - FATIGUE [None]
  - MYOPATHY [None]
  - NEUROLEPTIC MALIGNANT SYNDROME [None]
  - POSTURE ABNORMAL [None]
  - STRESS [None]
